FAERS Safety Report 18386281 (Version 1)
Quarter: 2020Q4

REPORT INFORMATION
  Report Type: Spontaneous
  Country: US (occurrence: US)
  Receive Date: 20201015
  Receipt Date: 20201015
  Transmission Date: 20210114
  Serious: Yes (Death, Other)
  Sender: FDA-Public Use
  Company Number: US-MYLANLABS-2020M1086296

PATIENT
  Age: 57 Year
  Sex: Male

DRUGS (1)
  1. NORTRIPTYLINE [Suspect]
     Active Substance: NORTRIPTYLINE
     Indication: PRODUCT USED FOR UNKNOWN INDICATION
     Dosage: UNK

REACTIONS (7)
  - Completed suicide [Fatal]
  - Mood swings [Not Recovered/Not Resolved]
  - Memory impairment [Not Recovered/Not Resolved]
  - Intentional overdose [Fatal]
  - Dependence [Not Recovered/Not Resolved]
  - Poisoning [Not Recovered/Not Resolved]
  - Impaired self-care [Not Recovered/Not Resolved]

NARRATIVE: CASE EVENT DATE: 200211
